FAERS Safety Report 8985454 (Version 1)
Quarter: 2012Q4

REPORT INFORMATION
  Report Type: 
  Country: AU (occurrence: AU)
  Receive Date: 20121226
  Receipt Date: 20121226
  Transmission Date: 20130627
  Serious: Yes (Hospitalization)
  Sender: FDA-Public Use
  Company Number: AU-SHIRE-SPV1-2012-00982

PATIENT
  Sex: Female

DRUGS (5)
  1. MEZAVANT [Suspect]
     Indication: PROCTITIS ULCERATIVE
     Dosage: 4.8 g, 1x/day:qd
     Route: 048
     Dates: start: 20121001, end: 2012
  2. MEZAVANT [Suspect]
     Dosage: 2.4 g, 1x/day:qd
     Route: 048
     Dates: start: 2012
  3. SALOFALK [Suspect]
     Indication: PRODUCT USED FOR UNKNOWN INDICATION
     Dosage: 4 g, Unknown
     Route: 054
     Dates: start: 20120906
  4. AZATHIOPRINE [Suspect]
     Indication: PRODUCT USED FOR UNKNOWN INDICATION
     Dosage: UNK, Unknown
     Route: 065
  5. PREDNISOLONE [Suspect]
     Indication: PRODUCT USED FOR UNKNOWN INDICATION
     Dosage: 40 mg, Unknown
     Route: 048
     Dates: start: 20120906

REACTIONS (2)
  - Cytomegalovirus infection [Unknown]
  - No therapeutic response [Unknown]
